FAERS Safety Report 15839483 (Version 1)
Quarter: 2019Q1

REPORT INFORMATION
  Report Type: Report from Study
  Country: IT (occurrence: IT)
  Receive Date: 20190117
  Receipt Date: 20190117
  Transmission Date: 20190417
  Serious: Yes (Other)
  Sender: FDA-Public Use
  Company Number: IT-TEVA-2019-IT-998866

PATIENT
  Age: 62 Year
  Sex: Female

DRUGS (4)
  1. CALCIO LEVOFOLINATO TEVA [Suspect]
     Active Substance: LEVOLEUCOVORIN CALCIUM
     Route: 065
  2. IRINOTECAN HIKMA [Suspect]
     Active Substance: IRINOTECAN
     Route: 065
  3. FLUOROURACILE TEVA [Suspect]
     Active Substance: FLUOROURACIL
     Route: 065
  4. ZALTRAP [Suspect]
     Active Substance: ZIV-AFLIBERCEPT
     Route: 065

REACTIONS (6)
  - Vomiting [Unknown]
  - Muscle spasms [Unknown]
  - Hypertension [Unknown]
  - Nausea [Unknown]
  - Aphthous ulcer [Unknown]
  - Dysentery [Unknown]

NARRATIVE: CASE EVENT DATE: 20161001
